FAERS Safety Report 7988878-6 (Version None)
Quarter: 2011Q4

REPORT INFORMATION
  Report Type: 
  Country: None (occurrence: None)
  Receive Date: 20111215
  Receipt Date: 20111215
  Transmission Date: 20120403
  Serious: Yes (Hospitalization)
  Sender: FDA-Public Use
  Company Number: None

PATIENT
  Age: 55 Year
  Sex: Female

DRUGS (1)
  1. AZATHIOPRINE [Suspect]
     Indication: ANKYLOSING SPONDYLITIS
     Dosage: 50MG DAILY PO
     Route: 048

REACTIONS (4)
  - IDIOSYNCRATIC DRUG REACTION [None]
  - HYPERPYREXIA [None]
  - HYPERSENSITIVITY [None]
  - PYREXIA [None]
